FAERS Safety Report 6194948-8 (Version None)
Quarter: 2009Q2

REPORT INFORMATION
  Report Type: 
  Country: None (occurrence: None)
  Receive Date: 20090519
  Receipt Date: 20090507
  Transmission Date: 20091009
  Serious: Yes (Hospitalization)
  Sender: FDA-Public Use
  Company Number: JP-GENENTECH-282846

PATIENT
  Age: 70 Year
  Sex: Female

DRUGS (4)
  1. AVASTIN [Suspect]
     Indication: LARGE INTESTINE CARCINOMA
     Dosage: UNK
     Route: 041
  2. LEUCOVORIN CALCIUM [Concomitant]
     Indication: DRUG USE FOR UNKNOWN INDICATION
     Dosage: UNK
  3. ELPLAT [Concomitant]
     Indication: DRUG USE FOR UNKNOWN INDICATION
     Dosage: UNK
  4. FLUOROURACIL [Concomitant]
     Indication: DRUG USE FOR UNKNOWN INDICATION
     Dosage: UNK

REACTIONS (1)
  - ANAPHYLACTOID REACTION [None]
